FAERS Safety Report 14915801 (Version 1)
Quarter: 2018Q2

REPORT INFORMATION
  Report Type: Report from Study
  Country: AU (occurrence: AU)
  Receive Date: 20180518
  Receipt Date: 20180518
  Transmission Date: 20180711
  Serious: Yes (Other)
  Sender: FDA-Public Use
  Company Number: AU-BIOGEN-2018BI00576834

PATIENT
  Age: 37 Year
  Sex: Female

DRUGS (1)
  1. TYSABRI [Suspect]
     Active Substance: NATALIZUMAB
     Indication: MULTIPLE SCLEROSIS
     Dosage: INFUSED OVER 1 HOUR
     Route: 042
     Dates: start: 2014

REACTIONS (12)
  - Musculoskeletal stiffness [Unknown]
  - Clumsiness [Unknown]
  - Muscle spasms [Unknown]
  - Malignant melanoma [Unknown]
  - Tremor [Unknown]
  - Motor dysfunction [Unknown]
  - Limb discomfort [Unknown]
  - Mobility decreased [Unknown]
  - Sleep disorder [Unknown]
  - Balance disorder [Unknown]
  - Mental fatigue [Unknown]
  - Anxiety [Unknown]

NARRATIVE: CASE EVENT DATE: 2015
